FAERS Safety Report 25956519 (Version 1)
Quarter: 2025Q4

REPORT INFORMATION
  Report Type: Spontaneous
  Country: UA (occurrence: UA)
  Receive Date: 20251024
  Receipt Date: 20251024
  Transmission Date: 20260118
  Serious: Yes (Death)
  Sender: MYLAN
  Company Number: UA-MYLANLABS-2025M1090427

PATIENT
  Age: 56 Year
  Sex: Male

DRUGS (5)
  1. PRETOMANID [Suspect]
     Active Substance: PRETOMANID
     Indication: Pulmonary tuberculosis
     Dosage: 200 MILLIGRAM, QD
     Dates: start: 20250804, end: 20250823
  2. LINEZOLID [Suspect]
     Active Substance: LINEZOLID
     Indication: Pulmonary tuberculosis
     Dosage: 600 MILLIGRAM, QD
     Dates: start: 20250804, end: 20250823
  3. MOXIFLOXACIN [Suspect]
     Active Substance: MOXIFLOXACIN
     Indication: Pulmonary tuberculosis
     Dosage: 400 MILLIGRAM, QD (1 TABLET CONTAINS MOXIFLOXACIN HYDROCHLORIDE (436.330 MG))
     Dates: start: 20250804, end: 20250823
  4. BEDAQUILINE [Suspect]
     Active Substance: BEDAQUILINE
     Indication: Pulmonary tuberculosis
     Dosage: 200 MILLIGRAM, 3XW 1 TABLET CONTAINS 120.89 MG OF BEDAQUILINE FUMARATE (EQUIVALENT TO 100 MG)
     Dates: start: 20250804, end: 20250823
  5. SIRTURO [Concomitant]
     Active Substance: BEDAQUILINE FUMARATE
     Dosage: UNK (188 TABLETS PER BOTTLE, 1 BOTTLE PER CARDBOARD BOX)
     Dates: start: 20250804, end: 20250828

REACTIONS (1)
  - Death [Fatal]

NARRATIVE: CASE EVENT DATE: 20250823
